FAERS Safety Report 4779603-0 (Version None)
Quarter: 2005Q3

REPORT INFORMATION
  Report Type: 
  Country: None (occurrence: None)
  Receive Date: 20050914
  Receipt Date: 20050401
  Transmission Date: 20060218
  Serious: Yes (Hospitalization)
  Sender: FDA-Public Use
  Company Number: 163-20785-04060538

PATIENT
  Age: 49 Year
  Sex: Female
  Weight: 68 kg

DRUGS (10)
  1. THALOMID [Suspect]
     Indication: MULTIPLE MYELOMA
     Dosage: 200 MG, DAILY, ORAL
     Route: 048
     Dates: start: 20040602, end: 20040605
  2. DEXAMETHASONE [Suspect]
     Indication: MULTIPLE MYELOMA
     Dosage: 40 MG, QD, ORAL
     Route: 048
     Dates: start: 20040602, end: 20040605
  3. CISPLATIN [Suspect]
     Indication: MULTIPLE MYELOMA
     Dosage: 18 MG, QD, INTRAVENOUS
     Route: 042
     Dates: start: 20040602, end: 20040605
  4. ADRIAMYCIN PFS [Suspect]
     Indication: MULTIPLE MYELOMA
     Dosage: 18 MG, QD, INTRAVENOUS
     Route: 042
     Dates: start: 20040602, end: 20040605
  5. CYCLOPHOSPHAMIDE (CYCLOPHOSPHAMIDE) (INJECTION FOR INFUSION) [Suspect]
     Indication: MULTIPLE MYELOMA
     Dosage: 716 MG, QD, INTRAVENOUS
     Route: 042
     Dates: start: 20040602, end: 20040605
  6. ETOPOSIDE [Suspect]
     Indication: MULTIPLE MYELOMA
     Dosage: 72 MG, QD, INTRAVENOUS
     Route: 042
     Dates: start: 20040602, end: 20040605
  7. BORTEZOMIB (BORTEZOMIB) (INJECTION FOR INFUSION) [Suspect]
     Indication: MULTIPLE MYELOMA
     Dosage: 1.8MG, INTRAVENOUS
     Route: 042
     Dates: start: 20040530
  8. BORTEZOMIB (BORTEZOMIB) (INJECTION FOR INFUSION) [Suspect]
     Indication: MULTIPLE MYELOMA
     Dosage: 1.8MG, INTRAVENOUS
     Route: 042
     Dates: start: 20040602
  9. BORTEZOMIB (BORTEZOMIB) (INJECTION FOR INFUSION) [Suspect]
     Indication: MULTIPLE MYELOMA
     Dosage: 1.8MG, INTRAVENOUS
     Route: 042
     Dates: start: 20040606
  10. BORTEZOMIB (BORTEZOMIB) (INJECTION FOR INFUSION) [Suspect]
     Indication: MULTIPLE MYELOMA
     Dosage: 1.8MG, INTRAVENOUS
     Route: 042
     Dates: start: 20040609

REACTIONS (5)
  - DIZZINESS [None]
  - DYSPNOEA [None]
  - PANCYTOPENIA [None]
  - PNEUMONIA [None]
  - SINUS TACHYCARDIA [None]
